FAERS Safety Report 19454076 (Version 3)
Quarter: 2022Q2

REPORT INFORMATION
  Report Type: Report from Study
  Country: US (occurrence: US)
  Receive Date: 20210623
  Receipt Date: 20220621
  Transmission Date: 20220721
  Serious: Yes (Death)
  Sender: FDA-Public Use
  Company Number: US-AMRYT PHARMACEUTICALS DAC-AEGR005204

PATIENT
  Age: 13 Year
  Sex: Female

DRUGS (11)
  1. METRELEPTIN [Suspect]
     Active Substance: METRELEPTIN
     Indication: Congenital generalised lipodystrophy
     Dosage: 2.25 MILLIGRAM, QD
     Route: 058
     Dates: start: 2009
  2. METRELEPTIN [Suspect]
     Active Substance: METRELEPTIN
     Indication: Progeria
     Dosage: 1.4 MILLIGRAM, QD
     Dates: start: 20141110, end: 20151112
  3. METRELEPTIN [Suspect]
     Active Substance: METRELEPTIN
     Dosage: 2.25 MILLIGRAM, QD
     Dates: start: 20151112, end: 20210613
  4. METRELEPTIN [Suspect]
     Active Substance: METRELEPTIN
     Dosage: 2.5 MILLIGRAM, QD
  5. BACTERIOSTATIC WATER [Concomitant]
     Active Substance: WATER
     Indication: Product used for unknown indication
  6. RIOMET [METFORMIN] [Concomitant]
     Indication: Product used for unknown indication
  7. FERROUS SULFATE [Concomitant]
     Active Substance: FERROUS SULFATE
     Indication: Product used for unknown indication
  8. ENALAPRIL MALEATE [Concomitant]
     Active Substance: ENALAPRIL MALEATE
     Indication: Proteinuria
     Dosage: 10 MILLIGRAM, TABLET
  9. ENALAPRIL MALEATE [Concomitant]
     Active Substance: ENALAPRIL MALEATE
     Dosage: 5 MILLIGRAM, QD
     Route: 048
     Dates: start: 20151111
  10. METFORMIN HYDROCHLORIDE [Concomitant]
     Active Substance: METFORMIN HYDROCHLORIDE
     Indication: Hyperglycaemia
     Dosage: 1000 MILLIGRAM, TABLET
  11. METFORMIN HYDROCHLORIDE [Concomitant]
     Active Substance: METFORMIN HYDROCHLORIDE
     Dosage: 500 MILLIGRAM SOLUTION, BID
     Route: 048

REACTIONS (2)
  - Cardiac failure congestive [Fatal]
  - Off label use [Unknown]

NARRATIVE: CASE EVENT DATE: 20210613
